FAERS Safety Report 23468325 (Version 1)
Quarter: 2024Q1

REPORT INFORMATION
  Report Type: Spontaneous
  Country: GB (occurrence: GB)
  Receive Date: 20240201
  Receipt Date: 20240201
  Transmission Date: 20240410
  Serious: Yes (Disabling)
  Sender: FDA-Public Use
  Company Number: None

PATIENT
  Age: 63 Year
  Sex: Female
  Weight: 52 kg

DRUGS (9)
  1. LEVOFLOXACIN [Suspect]
     Active Substance: LEVOFLOXACIN
     Indication: Ill-defined disorder
     Route: 065
     Dates: start: 20240129
  2. DOXYCYCLINE [Concomitant]
     Active Substance: DOXYCYCLINE
     Indication: Ill-defined disorder
     Dosage: TAKE TWO NOW THEN ONE DAILY FOR 4 DAYS TO TREAT...
     Dates: start: 20240103, end: 20240108
  3. PROGESTERONE [Concomitant]
     Active Substance: PROGESTERONE
     Indication: Ill-defined disorder
     Dosage: ONE TO BE TAKEN AT NIGHT
     Dates: start: 20230426
  4. ESTRADIOL [Concomitant]
     Active Substance: ESTRADIOL
     Indication: Ill-defined disorder
     Dosage: APPLY TWICE WEEKLY  (ON UTROGESTON)
     Dates: start: 20230426
  5. NITROFURANTOIN [Concomitant]
     Active Substance: NITROFURANTOIN
     Indication: Ill-defined disorder
     Dosage: TAKE 2 TABLETS TWICE A DAY FOR 7 DAYS
     Dates: start: 20231219, end: 20231226
  6. ALENDRONIC ACID [Concomitant]
     Active Substance: ALENDRONIC ACID
     Indication: Ill-defined disorder
     Dosage: TAKE ONE A WEEK, SWALLOW WITH PLENTY OF WATER W...
     Dates: start: 20230910
  7. CLARITHROMYCIN [Concomitant]
     Active Substance: CLARITHROMYCIN
     Indication: Ill-defined disorder
     Dosage: TAKE ONE TABLET TWICE A DAY FOR 7 DAYS, TO TREA...
     Dates: start: 20240108, end: 20240115
  8. CEPHALEXIN [Concomitant]
     Active Substance: CEPHALEXIN
     Indication: Ill-defined disorder
     Dosage: TAKE ONE CAPSULE TWICE A DAY FOR 7 DAYS, TO TRE...
     Dates: start: 20231227, end: 20240103
  9. OMEPRAZOLE [Concomitant]
     Active Substance: OMEPRAZOLE
     Indication: Ill-defined disorder
     Dosage: TAKE ONE DAILY
     Dates: start: 20230910

REACTIONS (1)
  - Arthritis [Recovering/Resolving]

NARRATIVE: CASE EVENT DATE: 20240129
